FAERS Safety Report 6958733-9 (Version None)
Quarter: 2010Q3

REPORT INFORMATION
  Report Type: 
  Country: None (occurrence: None)
  Receive Date: 20100831
  Receipt Date: 20100818
  Transmission Date: 20110219
  Serious: Yes (Other)
  Sender: FDA-Public Use
  Company Number: PHHY2010BR54748

PATIENT
  Age: 51 Year
  Sex: Male

DRUGS (1)
  1. VOLTAREN [Suspect]
     Dosage: 1 DF, ONCE/SINGLE

REACTIONS (4)
  - BLISTER [None]
  - ERYTHEMA [None]
  - SYNOVITIS [None]
  - VARICOSE VEIN [None]
